FAERS Safety Report 17218035 (Version 1)
Quarter: 2019Q4

REPORT INFORMATION
  Report Type: Spontaneous
  Country: FR (occurrence: FR)
  Receive Date: 20191231
  Receipt Date: 20191231
  Transmission Date: 20200122
  Serious: Yes (Hospitalization)
  Sender: FDA-Public Use
  Company Number: FR-TEVA-2019-FR-1159334

PATIENT
  Age: 61 Year
  Sex: Male

DRUGS (3)
  1. AMOXICILLINE [Suspect]
     Active Substance: AMOXICILLIN
     Indication: TRACHEITIS
     Dosage: UNKNOWN
     Route: 048
     Dates: start: 20181002, end: 20181002
  2. IBUPROFENE [Concomitant]
     Active Substance: IBUPROFEN
     Indication: TRACHEITIS
     Dosage: UNKNOWN
     Route: 048
     Dates: start: 20181002, end: 20181002
  3. PARACETAMOL [Concomitant]
     Active Substance: ACETAMINOPHEN
     Indication: TRACHEITIS
     Dosage: UNKNOWN
     Route: 048
     Dates: start: 20181002, end: 20181002

REACTIONS (1)
  - Anaphylactic shock [Recovered/Resolved]

NARRATIVE: CASE EVENT DATE: 20181002
